FAERS Safety Report 9469844 (Version 2)
Quarter: 2013Q3

REPORT INFORMATION
  Report Type: Spontaneous
  Country: US (occurrence: US)
  Receive Date: 20130822
  Receipt Date: 20130930
  Transmission Date: 20140515
  Serious: Yes (Other)
  Sender: FDA-Public Use
  Company Number: US-009507513-1308USA008565

PATIENT
  Age: 41 Year
  Sex: Female
  Weight: 114.29 kg

DRUGS (5)
  1. CLARINEX [Suspect]
     Indication: HYPERSENSITIVITY
     Dosage: 5 MG, QD PRN
     Route: 048
     Dates: start: 20130719, end: 20130810
  2. NASONEX [Concomitant]
     Dosage: DOSAGE UNSPECIFIED
     Route: 045
  3. PRAVASTATIN SODIUM [Concomitant]
  4. AMITRIPTYLINE HYDROCHLORIDE [Concomitant]
     Dosage: UNK
  5. HYDROCHLOROTHIAZIDE [Concomitant]
     Route: 048

REACTIONS (1)
  - Rash papular [Recovered/Resolved]
